FAERS Safety Report 10336762 (Version 2)
Quarter: 2014Q4

REPORT INFORMATION
  Report Type: Spontaneous
  Country: US (occurrence: US)
  Receive Date: 20140723
  Receipt Date: 20141021
  Transmission Date: 20150528
  Serious: Yes (Hospitalization, Other)
  Sender: FDA-Public Use
  Company Number: US-GLAXOSMITHKLINE-A1078085A

PATIENT
  Age: 53 Year
  Sex: Male

DRUGS (4)
  1. RYTHMOL SR [Suspect]
     Active Substance: PROPAFENONE HYDROCHLORIDE
     Indication: ATRIAL FIBRILLATION
     Dosage: 325 MG, PRN
     Route: 048
     Dates: start: 200609
  2. RYTHMOL SR [Suspect]
     Active Substance: PROPAFENONE HYDROCHLORIDE
     Indication: ARRHYTHMIA
     Dosage: 425 MG, UNK
  3. WARFARIN [Concomitant]
     Active Substance: WARFARIN
  4. LASIX [Concomitant]
     Active Substance: FUROSEMIDE

REACTIONS (10)
  - Heart rate increased [Unknown]
  - Intentional overdose [Unknown]
  - Suffocation feeling [Unknown]
  - Heart rate decreased [Unknown]
  - Arrhythmia [Unknown]
  - Blood testosterone decreased [Unknown]
  - Weight increased [Unknown]
  - Incorrect dosage administered [Unknown]
  - Drug administration error [Unknown]
  - Cardiac disorder [Unknown]

NARRATIVE: CASE EVENT DATE: 201405
